FAERS Safety Report 4678930-5 (Version None)
Quarter: 2005Q2

REPORT INFORMATION
  Report Type: 
  Country: None (occurrence: None)
  Receive Date: 20050531
  Receipt Date: 20050516
  Transmission Date: 20051028
  Serious: Yes (Disabling, Other)
  Sender: FDA-Public Use
  Company Number: 2005076276

PATIENT
  Age: 29 Year
  Sex: Male
  Weight: 79.3795 kg

DRUGS (2)
  1. ZYRTEC-D 12 HOUR [Suspect]
     Indication: UPPER RESPIRATORY TRACT INFECTION
     Dosage: TWICE DAILY, ORAL
     Route: 048
     Dates: start: 20050104, end: 20050105
  2. LAMICTAL [Concomitant]

REACTIONS (3)
  - AMNESIA [None]
  - DISORIENTATION [None]
  - IMPAIRED WORK ABILITY [None]
